FAERS Safety Report 8554275-8 (Version None)
Quarter: 2012Q3

REPORT INFORMATION
  Report Type: 
  Country: None (occurrence: None)
  Receive Date: 20120731
  Receipt Date: 20120723
  Transmission Date: 20120928
  Serious: Yes (Hospitalization)
  Sender: FDA-Public Use
  Company Number: US-009507513-1207USA009862

PATIENT

DRUGS (1)
  1. PEG-INTRON [Suspect]
     Dosage: 80 MICROGRAM/0.5ML, QW
     Route: 058

REACTIONS (2)
  - LOCALISED INFECTION [None]
  - ALOPECIA [None]
